FAERS Safety Report 6059818-4 (Version None)
Quarter: 2009Q1

REPORT INFORMATION
  Report Type: 
  Country: None (occurrence: None)
  Receive Date: 20090130
  Receipt Date: 20080925
  Transmission Date: 20090719
  Serious: No
  Sender: FDA-Public Use
  Company Number: US-ABBOTT-08P-163-0478248-00

PATIENT
  Sex: Female
  Weight: 70.37 kg

DRUGS (1)
  1. LUPRON DEPOT [Suspect]
     Indication: ACCIDENTAL NEEDLE STICK
     Route: 050
     Dates: start: 20080923, end: 20080923

REACTIONS (1)
  - ACCIDENTAL NEEDLE STICK [None]
